FAERS Safety Report 10120432 (Version 2)
Quarter: 2014Q2

REPORT INFORMATION
  Report Type: Spontaneous
  Country: US (occurrence: US)
  Receive Date: 20140425
  Receipt Date: 20140506
  Transmission Date: 20141212
  Serious: No
  Sender: FDA-Public Use
  Company Number: US-PFIZER INC-2014114361

PATIENT
  Age: 61 Year
  Sex: Female

DRUGS (7)
  1. EFFEXOR XR [Suspect]
     Dosage: UNK
  2. GABAPENTIN [Suspect]
     Dosage: UNK
  3. ALEVE [Suspect]
     Dosage: UNK
  4. BACLOFEN [Suspect]
     Dosage: UNK
  5. LAMICTAL [Suspect]
     Dosage: UNK
  6. MELOXICAM [Suspect]
     Dosage: UNK
  7. TYLENOL PM [Suspect]
     Dosage: UNK

REACTIONS (1)
  - Drug hypersensitivity [Unknown]
